FAERS Safety Report 9187650 (Version 1)
Quarter: 2013Q1

REPORT INFORMATION
  Report Type: Spontaneous
  Country: US (occurrence: US)
  Receive Date: 20130325
  Receipt Date: 20130325
  Transmission Date: 20140127
  Serious: Yes (Hospitalization)
  Sender: FDA-Public Use
  Company Number: US-B.I. PHARMACEUTICALS,INC./RIDGEFIELD-2013-BI-06920BP

PATIENT
  Age: 71 None
  Sex: Male
  Weight: 112 kg

DRUGS (1)
  1. DULCOLAX TABLETS [Suspect]
     Indication: CONSTIPATION
     Route: 048
     Dates: start: 2011

REACTIONS (2)
  - Joint range of motion decreased [Recovered/Resolved]
  - Constipation [Not Recovered/Not Resolved]
